FAERS Safety Report 10378395 (Version 1)
Quarter: 2014Q3

REPORT INFORMATION
  Report Type: Spontaneous
  Country: US (occurrence: None)
  Receive Date: 20140811
  Receipt Date: 20140811
  Transmission Date: 20150326
  Serious: Yes (Death, Life-Threatening, Hospitalization, Disabling)
  Sender: FDA-Public Use
  Company Number: None

PATIENT
  Age: 62 Year
  Sex: Female
  Weight: 81.65 kg

DRUGS (2)
  1. ATORVASTATIN [Suspect]
     Active Substance: ATORVASTATIN
     Indication: BLOOD CHOLESTEROL INCREASED
     Dosage: 1 PILL ONCE DAILY TAKEN BY MOUTH
     Route: 048
     Dates: start: 20130131, end: 20130316
  2. OMEPRAZOLE. [Suspect]
     Active Substance: OMEPRAZOLE
     Indication: GASTROINTESTINAL DISORDER
     Dosage: 1 PILL ONCE DAILY TAKEN BY MOUTH
     Route: 048
     Dates: start: 20130126, end: 20130316

REACTIONS (25)
  - Photopsia [None]
  - International normalised ratio increased [None]
  - Generalised oedema [None]
  - Respiratory arrest [None]
  - Capillary leak syndrome [None]
  - Pruritus [None]
  - Thrombosis in device [None]
  - Abdominal discomfort [None]
  - Haematoma [None]
  - Pain [None]
  - Pyrexia [None]
  - Asthenia [None]
  - Anger [None]
  - Cardiac arrest [None]
  - Dehydration [None]
  - Fatigue [None]
  - Weight increased [None]
  - Skin exfoliation [None]
  - Dyspnoea [None]
  - Sepsis [None]
  - Autoimmune disorder [None]
  - Rash [None]
  - Swelling [None]
  - Parvovirus infection [None]
  - Disseminated intravascular coagulation [None]

NARRATIVE: CASE EVENT DATE: 20130316
